FAERS Safety Report 18360953 (Version 1)
Quarter: 2020Q4

REPORT INFORMATION
  Report Type: Spontaneous
  Country: FR (occurrence: FR)
  Receive Date: 20201008
  Receipt Date: 20201008
  Transmission Date: 20210114
  Serious: Yes (Other)
  Sender: FDA-Public Use
  Company Number: FR-MYLANLABS-2020M1084422

PATIENT
  Age: 71 Year
  Sex: Female
  Weight: 64 kg

DRUGS (6)
  1. KARDEGIC [Concomitant]
     Active Substance: ASPIRIN DL-LYSINE
     Dosage: UNK
  2. ALDACTONE [Concomitant]
     Active Substance: SPIRONOLACTONE
     Dosage: UNK
  3. DUROGESIC [Concomitant]
     Active Substance: FENTANYL
     Dosage: UNK
  4. ESTRADIOL. [Suspect]
     Active Substance: ESTRADIOL
     Indication: PRODUCT USED FOR UNKNOWN INDICATION
     Dosage: UNK
  5. PYOSTACINE [Suspect]
     Active Substance: PRISTINAMYCIN
     Indication: PULMONARY MASS
     Dosage: UNK UNK, Q6M
     Dates: start: 202009
  6. PYOSTACINE [Suspect]
     Active Substance: PRISTINAMYCIN
     Indication: TOOTH DISORDER
     Dosage: UNK UNK, Q6M
     Dates: start: 1985

REACTIONS (16)
  - Condition aggravated [Unknown]
  - COVID-19 [Unknown]
  - Angioedema [Unknown]
  - Muscular weakness [Unknown]
  - Mucosal discolouration [Unknown]
  - External ear disorder [Unknown]
  - Skin disorder [Unknown]
  - Skin exfoliation [Unknown]
  - Blister [Unknown]
  - Vasodilatation [Unknown]
  - Aptyalism [Unknown]
  - Abdominal distension [Unknown]
  - Dyspepsia [Unknown]
  - Gait disturbance [Unknown]
  - Dry eye [Unknown]
  - Rash [Unknown]
